FAERS Safety Report 19292439 (Version 1)
Quarter: 2021Q2

REPORT INFORMATION
  Report Type: Spontaneous
  Country: US (occurrence: US)
  Receive Date: 20210524
  Receipt Date: 20210524
  Transmission Date: 20210717
  Serious: Yes (Other)
  Sender: FDA-Public Use
  Company Number: US-NOVOPROD-812560

PATIENT
  Sex: Male

DRUGS (1)
  1. OZEMPIC [Suspect]
     Active Substance: SEMAGLUTIDE
     Indication: TYPE 2 DIABETES MELLITUS
     Dosage: 1 MG, QW
     Route: 058
     Dates: start: 202011, end: 202105

REACTIONS (3)
  - Diabetic retinopathy [Not Recovered/Not Resolved]
  - Nephrolithiasis [Unknown]
  - Ophthalmological examination abnormal [Not Recovered/Not Resolved]

NARRATIVE: CASE EVENT DATE: 202104
